FAERS Safety Report 17101258 (Version 1)
Quarter: 2019Q4

REPORT INFORMATION
  Report Type: Spontaneous
  Country: US (occurrence: US)
  Receive Date: 20191202
  Receipt Date: 20191202
  Transmission Date: 20200122
  Serious: No
  Sender: FDA-Public Use
  Company Number: US-SA-2019SA332385

PATIENT
  Sex: Male

DRUGS (7)
  1. ASPIRIN 81 [Concomitant]
     Active Substance: ASPIRIN
     Dosage: UNK UNK, UNK
  2. DORZOLAMIDE HCL [Concomitant]
     Active Substance: DORZOLAMIDE HYDROCHLORIDE
     Dosage: UNK UNK, UNK
  3. LATANOPROST. [Concomitant]
     Active Substance: LATANOPROST
     Dosage: UNK UNK, UNK
  4. PRALUENT [Suspect]
     Active Substance: ALIROCUMAB
     Indication: ARTERIOSCLEROSIS
     Dosage: 75 MG,TWICE A MONTH
     Route: 058
  5. AMLODIPINE BESYLATE. [Concomitant]
     Active Substance: AMLODIPINE BESYLATE
     Dosage: UNK UNK, UNK
  6. ENALAPRIL MALEATE. [Concomitant]
     Active Substance: ENALAPRIL MALEATE
     Dosage: UNK UNK, UNK
  7. CENTRUM PLUS [Concomitant]
     Active Substance: VITAMINS
     Dosage: UNK UNK, UNK

REACTIONS (2)
  - Musculoskeletal stiffness [Not Recovered/Not Resolved]
  - Wheezing [Not Recovered/Not Resolved]
